FAERS Safety Report 24616507 (Version 1)
Quarter: 2024Q4

REPORT INFORMATION
  Report Type: Report from Study
  Country: US (occurrence: US)
  Receive Date: 20241114
  Receipt Date: 20241114
  Transmission Date: 20250115
  Serious: Yes (Other)
  Sender: ABBVIE
  Company Number: US-ABBVIE-5917368

PATIENT
  Age: 59 Year
  Sex: Female
  Weight: 39.008 kg

DRUGS (4)
  1. CREON [Suspect]
     Active Substance: PANCRELIPASE AMYLASE\PANCRELIPASE LIPASE\PANCRELIPASE PROTEASE
     Indication: Pancreatitis
     Dosage: 2 CAPSULES PER MEAL AND 1 WITH SNACK, AT MOST 8 A DAY.?FORM STRENGTH 360000
     Route: 048
     Dates: start: 202408
  2. CREON [Suspect]
     Active Substance: PANCRELIPASE AMYLASE\PANCRELIPASE LIPASE\PANCRELIPASE PROTEASE
     Indication: Pancreatitis
     Dosage: ONE CAPSULE MEALS AND ONE CAPSULE WITH SNACK?FORM STRENGTH 360000
     Route: 048
     Dates: start: 20240301, end: 202408
  3. PREDNISONE [Concomitant]
     Active Substance: PREDNISONE
     Indication: Diarrhoea
  4. ONDANSETRON [Concomitant]
     Active Substance: ONDANSETRON
     Indication: Nausea

REACTIONS (14)
  - Neoplasm malignant [Unknown]
  - Bile acid malabsorption [Recovered/Resolved]
  - Rash papular [Not Recovered/Not Resolved]
  - Diarrhoea [Recovering/Resolving]
  - Impaired gastric emptying [Not Recovered/Not Resolved]
  - Weight decreased [Not Recovered/Not Resolved]
  - Coeliac disease [Not Recovered/Not Resolved]
  - Gastrointestinal microorganism overgrowth [Not Recovered/Not Resolved]
  - Pancreatic atrophy [Unknown]
  - Rash pruritic [Not Recovered/Not Resolved]
  - Weight increased [Unknown]
  - Bile acid malabsorption [Unknown]
  - Duodenitis [Unknown]
  - Gastritis [Unknown]

NARRATIVE: CASE EVENT DATE: 20240101
